FAERS Safety Report 7716147-8 (Version None)
Quarter: 2011Q3

REPORT INFORMATION
  Report Type: 
  Country: None (occurrence: None)
  Receive Date: 20110829
  Receipt Date: 20110826
  Transmission Date: 20111222
  Serious: Yes (Death, Life-Threatening, Hospitalization, Other)
  Sender: FDA-Public Use
  Company Number: US-CEPHALON-2011001702

PATIENT
  Sex: Female
  Weight: 41 kg

DRUGS (1)
  1. TREANDA [Suspect]
     Indication: ACUTE LYMPHOCYTIC LEUKAEMIA
     Route: 041
     Dates: start: 20110331, end: 20110401

REACTIONS (14)
  - RENAL DISORDER [None]
  - HYPERCALCAEMIA [None]
  - HYPERKALAEMIA [None]
  - HYPOXIA [None]
  - BLOOD CREATININE INCREASED [None]
  - DEPRESSED LEVEL OF CONSCIOUSNESS [None]
  - MULTI-ORGAN FAILURE [None]
  - PORTAL VEIN THROMBOSIS [None]
  - FUNGAL SEPSIS [None]
  - TUMOUR LYSIS SYNDROME [None]
  - HYPOTENSION [None]
  - HYPERGLYCAEMIA [None]
  - ELECTROCARDIOGRAM QT PROLONGED [None]
  - ASPERGILLOSIS [None]
